FAERS Safety Report 9874041 (Version 2)
Quarter: 2014Q1

REPORT INFORMATION
  Report Type: Other
  Country: US (occurrence: US)
  Receive Date: 20140206
  Receipt Date: 20140206
  Transmission Date: 20141002
  Serious: No
  Sender: FDA-Public Use
  Company Number: US-ACORDA-ACO_34877_2013

PATIENT
  Sex: Female

DRUGS (12)
  1. AMPYRA [Suspect]
     Indication: PRODUCT USED FOR UNKNOWN INDICATION
     Dosage: 10 MG, Q 12 HRS
     Route: 048
     Dates: start: 201208, end: 201302
  2. VITAMIN B1 [Concomitant]
     Indication: PRODUCT USED FOR UNKNOWN INDICATION
     Dosage: 50 MG, UNK
  3. LYRICA [Concomitant]
     Indication: PRODUCT USED FOR UNKNOWN INDICATION
     Dosage: 50 MG, UNK
  4. MULTIVITAMIN [Concomitant]
     Indication: PRODUCT USED FOR UNKNOWN INDICATION
  5. VITAMIN D3 [Concomitant]
     Indication: PRODUCT USED FOR UNKNOWN INDICATION
     Dosage: 1000 UT, UNK
  6. AMANTADINE [Concomitant]
     Indication: PRODUCT USED FOR UNKNOWN INDICATION
     Dosage: 100 MG, UNK
  7. VITAMIN K [Concomitant]
     Indication: PRODUCT USED FOR UNKNOWN INDICATION
     Dosage: 100 ?G, UNK
  8. ALEVE [Concomitant]
     Indication: PRODUCT USED FOR UNKNOWN INDICATION
     Dosage: 220 MG, UNK
  9. GLUCOSAMINE [Concomitant]
     Indication: PRODUCT USED FOR UNKNOWN INDICATION
     Dosage: 1000 MG, UNK
  10. CO Q 10 [Concomitant]
     Indication: PRODUCT USED FOR UNKNOWN INDICATION
     Dosage: 100 MG, UNK
  11. OMEGA 3 [Concomitant]
     Indication: PRODUCT USED FOR UNKNOWN INDICATION
     Dosage: 1000 MG, UNK
  12. (TERIFLUNOMIDE [Concomitant]

REACTIONS (8)
  - Skin burning sensation [Not Recovered/Not Resolved]
  - Back pain [Recovered/Resolved]
  - Dyspepsia [Recovered/Resolved]
  - Dizziness [Recovered/Resolved]
  - Paraesthesia [Not Recovered/Not Resolved]
  - Multiple sclerosis [Unknown]
  - Adverse drug reaction [Unknown]
  - Drug ineffective [Unknown]
